FAERS Safety Report 5842209-6 (Version None)
Quarter: 2008Q3

REPORT INFORMATION
  Report Type: 
  Country: None (occurrence: None)
  Receive Date: 20080812
  Receipt Date: 20080804
  Transmission Date: 20090109
  Serious: Yes (Hospitalization, Other)
  Sender: FDA-Public Use
  Company Number: PHEH1999US05038

PATIENT
  Sex: Male
  Weight: 106 kg

DRUGS (2)
  1. RAD 666 RAD+ [Suspect]
     Dosage: 0.75 MG, BID
     Route: 048
     Dates: start: 19990921
  2. NEORAL [Suspect]
     Dosage: UNSPECIFIED
     Route: 048
     Dates: start: 19990921, end: 19991012

REACTIONS (2)
  - DRUG TOXICITY [None]
  - MENINGITIS ASEPTIC [None]
